FAERS Safety Report 7664532-5 (Version None)
Quarter: 2011Q3

REPORT INFORMATION
  Report Type: 
  Country: None (occurrence: None)
  Receive Date: 20110806
  Receipt Date: 20110223
  Transmission Date: 20111222
  Serious: No
  Sender: FDA-Public Use
  Company Number: US-ABBOTT-11P-163-0707145-00

PATIENT
  Sex: Female
  Weight: 104.42 kg

DRUGS (4)
  1. ASPIRIN [Concomitant]
     Indication: PRODUCT USED FOR UNKNOWN INDICATION
  2. NIASPAN [Suspect]
     Indication: BLOOD CHOLESTEROL ABNORMAL
  3. CRESTOR [Concomitant]
     Indication: PRODUCT USED FOR UNKNOWN INDICATION
  4. NIASPAN [Suspect]
     Indication: ARTERIOSCLEROSIS
     Dates: start: 20110217

REACTIONS (5)
  - FEELING HOT [None]
  - PARAESTHESIA [None]
  - FLUSHING [None]
  - PRURITUS [None]
  - ERYTHEMA [None]
